FAERS Safety Report 4438658-3 (Version None)
Quarter: 2004Q3

REPORT INFORMATION
  Report Type: 
  Country: None (occurrence: None)
  Receive Date: 20040830
  Receipt Date: 20040830
  Transmission Date: 20050211
  Serious: Yes (Other)
  Sender: FDA-Public Use
  Company Number: None

PATIENT
  Sex: Male
  Weight: 127.0072 kg

DRUGS (6)
  1. DURAGESIC [Suspect]
     Indication: BACK PAIN
     Dosage: 75MCG/HR Q 48H TRANSDERMAL
     Route: 062
     Dates: start: 20040301, end: 20040430
  2. DURAGESIC [Suspect]
     Indication: CERVICOBRACHIAL SYNDROME
     Dosage: 75MCG/HR Q 48H TRANSDERMAL
     Route: 062
     Dates: start: 20040301, end: 20040430
  3. DURAGESIC [Suspect]
     Indication: REFLEX SYMPATHETIC DYSTROPHY
     Dosage: 75MCG/HR Q 48H TRANSDERMAL
     Route: 062
     Dates: start: 20040301, end: 20040430
  4. DURAGESIC [Suspect]
     Indication: SCIATICA
     Dosage: 75MCG/HR Q 48H TRANSDERMAL
     Route: 062
     Dates: start: 20040301, end: 20040430
  5. METHADONE HCL [Concomitant]
  6. OXYCODONE HCL [Concomitant]

REACTIONS (2)
  - DRUG INEFFECTIVE [None]
  - INADEQUATE ANALGESIA [None]
